FAERS Safety Report 4654986-0 (Version None)
Quarter: 2005Q2

REPORT INFORMATION
  Report Type: 
  Country: None (occurrence: None)
  Receive Date: 20050504
  Receipt Date: 20050425
  Transmission Date: 20051028
  Serious: Yes (Disabling)
  Sender: FDA-Public Use
  Company Number: 200503466

PATIENT
  Age: 40 Year
  Sex: Female

DRUGS (1)
  1. BOTOX [Suspect]
     Indication: SKIN WRINKLING

REACTIONS (9)
  - BLINDNESS TRANSIENT [None]
  - DIPLOPIA [None]
  - DRUG ADMINISTRATION ERROR [None]
  - EYELID PTOSIS [None]
  - MUSCLE DISORDER [None]
  - NO REACTION ON PREVIOUS EXPOSURE TO DRUG [None]
  - POST PROCEDURAL COMPLICATION [None]
  - THERAPY NON-RESPONDER [None]
  - VISUAL ACUITY REDUCED [None]
